FAERS Safety Report 15806851 (Version 2)
Quarter: 2019Q1

REPORT INFORMATION
  Report Type: Spontaneous
  Country: US (occurrence: US)
  Receive Date: 20190110
  Receipt Date: 20190313
  Transmission Date: 20190417
  Serious: No
  Sender: FDA-Public Use
  Company Number: US-GLAXOSMITHKLINE-US2019000355

PATIENT
  Age: 69 Year
  Sex: Female

DRUGS (1)
  1. INCRUSE ELLIPTA [Suspect]
     Active Substance: UMECLIDINIUM BROMIDE
     Indication: PRODUCT USED FOR UNKNOWN INDICATION
     Route: 055

REACTIONS (3)
  - Product dose omission [Not Recovered/Not Resolved]
  - Wrong technique in device usage process [Unknown]
  - Product complaint [Unknown]

NARRATIVE: CASE EVENT DATE: 20181211
